FAERS Safety Report 18274137 (Version 1)
Quarter: 2020Q3

REPORT INFORMATION
  Report Type: Spontaneous
  Country: JP (occurrence: JP)
  Receive Date: 20200916
  Receipt Date: 20200916
  Transmission Date: 20201103
  Serious: Yes (Other)
  Sender: FDA-Public Use
  Company Number: JP-BRISTOL-MYERS SQUIBB COMPANY-BMS-2020-075056

PATIENT

DRUGS (1)
  1. OPDIVO [Suspect]
     Active Substance: NIVOLUMAB
     Indication: OESOPHAGEAL CARCINOMA
     Dosage: 240 MG
     Route: 041
     Dates: start: 202007

REACTIONS (3)
  - Autoimmune endocrine disorder [Unknown]
  - Malaise [Unknown]
  - C-reactive protein increased [Unknown]

NARRATIVE: CASE EVENT DATE: 20200909
